FAERS Safety Report 9248982 (Version 1)
Quarter: 2013Q1

REPORT INFORMATION
  Report Type: Spontaneous
  Country: US (occurrence: None)
  Receive Date: 20130305
  Receipt Date: 20130305
  Transmission Date: 20140127
  Serious: Yes (Hospitalization)
  Sender: FDA-Public Use
  Company Number: 163-21880-12053219

PATIENT
  Age: 67 Year
  Sex: Female

DRUGS (2)
  1. REVLIMID [Suspect]
     Indication: PLASMA CELL MYELOMA
     Dosage: 19MG, DAILY ON MONDAY THROUGH FRIDAY, PO
     Dates: start: 20110624
  2. HYPERTENTION MEDICATION (ANTIHYPERTENSIVES) [Concomitant]

REACTIONS (1)
  - Hypertension [None]
